FAERS Safety Report 7270595-1 (Version None)
Quarter: 2011Q1

REPORT INFORMATION
  Report Type: 
  Country: None (occurrence: None)
  Receive Date: 20110202
  Receipt Date: 20110124
  Transmission Date: 20110831
  Serious: Yes (Hospitalization)
  Sender: FDA-Public Use
  Company Number: A0792337A

PATIENT
  Age: 77 Year
  Sex: Male
  Weight: 78.6 kg

DRUGS (8)
  1. AVANDIA [Suspect]
     Indication: DIABETES MELLITUS
     Dosage: 8MG PER DAY
     Route: 048
     Dates: start: 20060125, end: 20070101
  2. PROTONIX [Concomitant]
  3. ZOCOR [Concomitant]
  4. FLOMAX [Concomitant]
  5. INSULIN [Concomitant]
  6. GLIPIZIDE [Concomitant]
  7. XANAX [Concomitant]
  8. ZOLOFT [Concomitant]

REACTIONS (21)
  - PNEUMONIA [None]
  - INCISION SITE PAIN [None]
  - BUNDLE BRANCH BLOCK RIGHT [None]
  - RENAL FAILURE [None]
  - URINARY TRACT INFECTION [None]
  - PERIPHERAL ARTERIAL OCCLUSIVE DISEASE [None]
  - CARDIOMYOPATHY [None]
  - POSTOPERATIVE WOUND INFECTION [None]
  - CARDIOMEGALY [None]
  - CORONARY ARTERY STENOSIS [None]
  - HALLUCINATION [None]
  - METABOLIC ENCEPHALOPATHY [None]
  - CARDIAC ARREST [None]
  - CARDIAC FAILURE CONGESTIVE [None]
  - ANAEMIA [None]
  - CONFUSIONAL STATE [None]
  - ACUTE MYOCARDIAL INFARCTION [None]
  - ATRIAL FIBRILLATION [None]
  - MYOCARDIAL ISCHAEMIA [None]
  - SUICIDAL IDEATION [None]
  - HAEMATOMA [None]
